FAERS Safety Report 13550952 (Version 1)
Quarter: 2017Q2

REPORT INFORMATION
  Report Type: Other
  Country: US (occurrence: US)
  Receive Date: 20170516
  Receipt Date: 20170516
  Transmission Date: 20170830
  Serious: Yes (Other)
  Sender: FDA-Public Use
  Company Number: US-COL_26613_2017

PATIENT
  Age: 67 Year
  Sex: Female

DRUGS (1)
  1. TOM^S NATURAL ANTIPLAQUE + WHITENING FLUORIDE FREE [Suspect]
     Active Substance: COSMETICS
     Indication: DENTAL DISORDER PROPHYLAXIS
     Dosage: ENOUGH TOOTHPASTE TO COVER THE BRISTLES WITH THIN AMOUNT/BID/
     Route: 048
     Dates: start: 1982, end: 20170502

REACTIONS (4)
  - Tongue discomfort [Recovering/Resolving]
  - Plicated tongue [Recovering/Resolving]
  - Tongue disorder [Recovered/Resolved]
  - Swollen tongue [Recovering/Resolving]

NARRATIVE: CASE EVENT DATE: 2014
